FAERS Safety Report 24335724 (Version 2)
Quarter: 2024Q4

REPORT INFORMATION
  Report Type: Spontaneous
  Country: DE (occurrence: DE)
  Receive Date: 20240919
  Receipt Date: 20241004
  Transmission Date: 20250115
  Serious: Yes (Other)
  Sender: NOVO NORDISK
  Company Number: DE-NOVOPROD-1281391

PATIENT
  Age: 69 Year
  Sex: Female
  Weight: 77 kg

DRUGS (2)
  1. NOVORAPID [Suspect]
     Active Substance: INSULIN ASPART
     Indication: Product used for unknown indication
     Dosage: 24.8/DAY (UNIT IS NOT REPORTED)
     Dates: start: 202309, end: 202409
  2. NOVORAPID [Suspect]
     Active Substance: INSULIN ASPART
     Indication: Prophylaxis
     Dosage: UNK
     Dates: end: 202409

REACTIONS (1)
  - Neoplasm malignant [Not Recovered/Not Resolved]

NARRATIVE: CASE EVENT DATE: 20240101
